FAERS Safety Report 7246871-5 (Version None)
Quarter: 2011Q1

REPORT INFORMATION
  Report Type: 
  Country: None (occurrence: None)
  Receive Date: 20110127
  Receipt Date: 20110115
  Transmission Date: 20110831
  Serious: Yes (Other)
  Sender: FDA-Public Use
  Company Number: PHHY2011CA02774

PATIENT
  Sex: Male

DRUGS (4)
  1. COVERSYL [Concomitant]
     Dosage: 8 MG, UNK
     Dates: start: 20090521
  2. ALISKIREN [Suspect]
     Indication: HYPERTENSION
     Dosage: 150 MG/DAY
     Route: 048
     Dates: start: 20090611
  3. ALISKIREN [Suspect]
     Indication: PROTEINURIA
  4. HYDROCHLOROTHIAZIDE [Concomitant]
     Dosage: 25 MG DAILY
     Dates: start: 20090521

REACTIONS (2)
  - RENAL FAILURE [None]
  - PROTEINURIA [None]
